FAERS Safety Report 14525150 (Version 2)
Quarter: 2018Q2

REPORT INFORMATION
  Report Type: Spontaneous
  Country: NL (occurrence: NL)
  Receive Date: 20180213
  Receipt Date: 20180413
  Transmission Date: 20180711
  Serious: Yes (Death, Hospitalization, Other)
  Sender: FDA-Public Use
  Company Number: NL-GLAXOSMITHKLINE-NL2018GSK024205

PATIENT
  Age: 62 Year
  Sex: Female
  Weight: 77 kg

DRUGS (4)
  1. NUCALA [Suspect]
     Active Substance: MEPOLIZUMAB
     Indication: ASTHMA
     Dosage: 100 MG, UNK
     Route: 058
     Dates: start: 20171206
  2. DEXAMETHASONE. [Concomitant]
     Active Substance: DEXAMETHASONE
     Indication: PROPHYLAXIS
     Dosage: 8 MG, BID
     Dates: start: 20180104, end: 20180106
  3. CLEMASTINE [Concomitant]
     Active Substance: CLEMASTINE
     Indication: PROPHYLAXIS
     Dosage: 1 MG, BID
     Dates: start: 20180104, end: 20180106
  4. NUCALA [Suspect]
     Active Substance: MEPOLIZUMAB
     Dosage: UNK
     Dates: start: 20180105

REACTIONS (28)
  - Death [Fatal]
  - Constipation [Unknown]
  - Iron deficiency anaemia [Unknown]
  - Cor pulmonale [Unknown]
  - Fatigue [Unknown]
  - Hypomagnesaemia [Unknown]
  - Hypophosphataemia [Unknown]
  - Wheezing [Unknown]
  - Arrhythmia [Unknown]
  - Feeling cold [Unknown]
  - Cough [Unknown]
  - Influenza [Unknown]
  - Dyspnoea [Unknown]
  - Hypersensitivity [Recovered/Resolved]
  - Hyperhidrosis [Unknown]
  - Oropharyngeal discomfort [Unknown]
  - Speech disorder [Unknown]
  - Mobility decreased [Unknown]
  - Metabolic alkalosis [Unknown]
  - Obesity [Unknown]
  - Sinus tachycardia [Unknown]
  - Respiratory failure [Unknown]
  - Hypermagnesaemia [Unknown]
  - Malaise [Unknown]
  - Poor quality sleep [Unknown]
  - Oedema [Unknown]
  - Normocytic anaemia [Unknown]
  - Chronic obstructive pulmonary disease [Unknown]

NARRATIVE: CASE EVENT DATE: 20180118
